FAERS Safety Report 9821801 (Version 2)
Quarter: 2014Q2

REPORT INFORMATION
  Report Type: Spontaneous
  Country: SE (occurrence: SE)
  Receive Date: 20140116
  Receipt Date: 20140404
  Transmission Date: 20141212
  Serious: Yes (Other)
  Sender: FDA-Public Use
  Company Number: SE-BAYER-2014-003825

PATIENT
  Age: 32 Year
  Sex: Female

DRUGS (2)
  1. QLAIRA [Suspect]
     Indication: ENDOMETRIOSIS
     Dosage: UNK
     Dates: start: 201301, end: 201303
  2. QLAIRA [Suspect]
     Indication: ENDOMETRIOSIS

REACTIONS (2)
  - Suicidal ideation [Recovered/Resolved]
  - Depressed mood [Recovered/Resolved]
